FAERS Safety Report 5825856-7 (Version None)
Quarter: 2008Q3

REPORT INFORMATION
  Report Type: 
  Country: None (occurrence: None)
  Receive Date: 20080729
  Receipt Date: 20080523
  Transmission Date: 20090109
  Serious: Yes (Other)
  Sender: FDA-Public Use
  Company Number: GB-GILEAD-2008-0016394

PATIENT
  Age: 28 Year
  Sex: Female

DRUGS (8)
  1. VIREAD [Suspect]
     Indication: HIV INFECTION
  2. EMTRIVA [Suspect]
     Indication: HIV INFECTION
  3. EFAVIRENZ [Suspect]
     Indication: HIV INFECTION
  4. EFAVIRENZ [Suspect]
  5. ETHAMBUTOL HCL [Suspect]
     Indication: PULMONARY TUBERCULOSIS
  6. ISONIAZID [Suspect]
     Indication: PULMONARY TUBERCULOSIS
  7. PYRAZINAMIDE [Suspect]
     Indication: PULMONARY TUBERCULOSIS
  8. RIFAMPICIN [Suspect]
     Indication: PULMONARY TUBERCULOSIS

REACTIONS (6)
  - DRUG LEVEL INCREASED [None]
  - NAUSEA [None]
  - PULMONARY TUBERCULOSIS [None]
  - SLEEP DISORDER [None]
  - TRANSAMINASES INCREASED [None]
  - VOMITING [None]
